FAERS Safety Report 5335678-1 (Version None)
Quarter: 2007Q2

REPORT INFORMATION
  Report Type: 
  Country: None (occurrence: None)
  Receive Date: 20070322
  Receipt Date: 20070202
  Transmission Date: 20071010
  Serious: No
  Sender: FDA-Public Use
  Company Number: 2007US000302

PATIENT
  Age: 79 Year
  Sex: Male

DRUGS (12)
  1. VESICARE [Suspect]
     Indication: URINARY INCONTINENCE
     Dosage: 5MG, ORAL
     Route: 048
  2. METFORMIN (METFORMIN HYDROCHLORIDE) [Concomitant]
  3. LIPITOR [Concomitant]
  4. ZETIA [Concomitant]
  5. AVANDIA [Concomitant]
  6. GLIMEPIRIDE [Concomitant]
  7. ATENOLOL [Concomitant]
  8. DIOVAN [Concomitant]
  9. SYNTHROID [Concomitant]
  10. PRIMIDONE [Concomitant]
  11. MAGNESIUM SULFATE [Concomitant]
  12. NITROGLYCERIN [Concomitant]

REACTIONS (2)
  - DIZZINESS [None]
  - VISION BLURRED [None]
